FAERS Safety Report 4849054-9 (Version None)
Quarter: 2005Q4

REPORT INFORMATION
  Report Type: 
  Country: None (occurrence: None)
  Receive Date: 20051209
  Receipt Date: 20050428
  Transmission Date: 20060501
  Serious: Yes (Life-Threatening, Hospitalization)
  Sender: FDA-Public Use
  Company Number: JP-BOEHRINGER INGELHEIM PHARMACEUTICALS, INC.-2005-BP-07633NB

PATIENT
  Sex: Female
  Weight: 48 kg

DRUGS (9)
  1. MICARDIS [Suspect]
     Indication: HYPERTENSION
     Route: 048
     Dates: start: 20040801
  2. MEDET [Suspect]
     Indication: DIABETES MELLITUS
     Route: 048
  3. AMARYL [Suspect]
     Indication: DIABETES MELLITUS
     Route: 048
     Dates: end: 20050418
  4. URSO [Concomitant]
     Indication: HEPATITIS C
     Route: 048
  5. GLYCYRON [Concomitant]
     Indication: HEPATITIS C
     Route: 048
  6. NORVASC [Concomitant]
     Indication: HYPERTENSION
     Route: 048
  7. PROMAC (POLAPREZINC) [Concomitant]
     Route: 048
  8. GASTER D [Concomitant]
     Route: 048
  9. BEZATOL SR (BEZAFIBRATE) [Concomitant]
     Route: 048

REACTIONS (1)
  - HYPOGLYCAEMIA [None]
